FAERS Safety Report 16239141 (Version 1)
Quarter: 2019Q2

REPORT INFORMATION
  Report Type: Spontaneous
  Country: CH (occurrence: CH)
  Receive Date: 20190425
  Receipt Date: 20190425
  Transmission Date: 20190711
  Serious: Yes (Other)
  Sender: FDA-Public Use
  Company Number: CH-GILEAD-2019-0395956

PATIENT
  Age: 75 Year
  Sex: Male

DRUGS (1)
  1. EPCLUSA [Suspect]
     Active Substance: SOFOSBUVIR\VELPATASVIR
     Indication: CHRONIC HEPATITIS C
     Dosage: UNK
     Route: 065
     Dates: start: 20171020, end: 20180112

REACTIONS (3)
  - Hepatitis C [Not Recovered/Not Resolved]
  - Genotype drug resistance test positive [Unknown]
  - Treatment failure [Not Recovered/Not Resolved]

NARRATIVE: CASE EVENT DATE: 20180209
